FAERS Safety Report 7752367-4 (Version None)
Quarter: 2011Q3

REPORT INFORMATION
  Report Type: 
  Country: None (occurrence: None)
  Receive Date: 20110913
  Receipt Date: 20110801
  Transmission Date: 20111222
  Serious: Yes (Death, Hospitalization)
  Sender: FDA-Public Use
  Company Number: 2011174307

PATIENT
  Age: 58 Year

DRUGS (5)
  1. GEMTUZUMAB OZOGAMICIN (GEMTUZUMAB OZOGAMICIN) UNKNOWN [Suspect]
     Indication: ACUTE MYELOID LEUKAEMIA
     Dates: start: 20110704, end: 20110711
  2. CYTARABINE [Suspect]
     Indication: ACUTE MYELOID LEUKAEMIA
     Dates: start: 20110704, end: 20110711
  3. IDARUBICIN HCL [Suspect]
     Indication: ACUTE MYELOID LEUKAEMIA
     Dates: start: 20110704, end: 20110711
  4. FLUDARABINE PHOSPHATE [Suspect]
     Indication: ACUTE MYELOID LEUKAEMIA
     Dates: start: 20110704, end: 20110711
  5. DAUNORUBICIN HYDROCHLORIDE [Suspect]
     Indication: ACUTE MYELOID LEUKAEMIA
     Dates: start: 20110704, end: 20110711

REACTIONS (4)
  - ENTEROCOLITIS [None]
  - RENAL FAILURE [None]
  - SEPSIS [None]
  - NEUTROPENIA [None]
